FAERS Safety Report 25221148 (Version 1)
Quarter: 2025Q2

REPORT INFORMATION
  Report Type: Spontaneous
  Country: US (occurrence: US)
  Receive Date: 20250421
  Receipt Date: 20250421
  Transmission Date: 20250717
  Serious: No
  Sender: TEIKOKU
  Company Number: US-Teikoku Pharma USA-TPU2023-00535

PATIENT
  Sex: Female

DRUGS (2)
  1. LIDOCAINE PATCH [Suspect]
     Active Substance: LIDOCAINE
     Indication: Product used for unknown indication
  2. LIDOCAINE PATCH [Suspect]
     Active Substance: LIDOCAINE
     Route: 061

REACTIONS (1)
  - Product dose omission issue [Unknown]
